FAERS Safety Report 10466402 (Version 1)
Quarter: 2014Q3

REPORT INFORMATION
  Report Type: Other
  Country: IN (occurrence: IN)
  Receive Date: 20140922
  Receipt Date: 20140922
  Transmission Date: 20150326
  Serious: Yes (Other)
  Sender: FDA-Public Use
  Company Number: IN-LUPIN PHARMACEUTICALS INC.-2014-01493

PATIENT
  Age: 24 Year
  Sex: Female

DRUGS (3)
  1. TRAMADOL [Suspect]
     Active Substance: TRAMADOL
     Dosage: INCREASED TO 800MG
     Route: 065
  2. TRAMADOL [Suspect]
     Active Substance: TRAMADOL
     Indication: LIGAMENT SPRAIN
     Route: 065
  3. DICLOFENAC [Concomitant]
     Active Substance: DICLOFENAC
     Indication: LIGAMENT SPRAIN
     Route: 065

REACTIONS (3)
  - Overdose [Unknown]
  - Drug dependence [Recovered/Resolved]
  - Drug withdrawal syndrome [Recovering/Resolving]
